FAERS Safety Report 6037560-3 (Version None)
Quarter: 2009Q1

REPORT INFORMATION
  Report Type: 
  Country: None (occurrence: None)
  Receive Date: 20090113
  Receipt Date: 20090102
  Transmission Date: 20090719
  Serious: Yes (Hospitalization)
  Sender: FDA-Public Use
  Company Number: CHPA2009US00445

PATIENT
  Age: 13 Year
  Sex: Male

DRUGS (1)
  1. BUFFERIN [Suspect]
     Indication: RHEUMATIC FEVER
     Dosage: ORAL
     Route: 048
     Dates: start: 20081201

REACTIONS (4)
  - ANOREXIA [None]
  - CLOSTRIDIAL INFECTION [None]
  - DIARRHOEA [None]
  - HAEMATOCHEZIA [None]
